FAERS Safety Report 6277818-6 (Version None)
Quarter: 2009Q3

REPORT INFORMATION
  Report Type: 
  Country: None (occurrence: None)
  Receive Date: 20090717
  Receipt Date: 20090717
  Transmission Date: 20100115
  Serious: Yes (Life-Threatening, Disabling)
  Sender: FDA-Public Use
  Company Number: None

PATIENT
  Age: 59 Year
  Sex: Male
  Weight: 86.1834 kg

DRUGS (1)
  1. MOVIPREP [Suspect]
     Indication: COLONOSCOPY
     Dosage: HALF DOSAGE EVERY 15 OR 20 MIN PO
     Route: 048
     Dates: start: 20090714, end: 20090714

REACTIONS (5)
  - ABDOMINAL PAIN UPPER [None]
  - CHILLS [None]
  - DIVERTICULITIS [None]
  - FLATULENCE [None]
  - RETCHING [None]
